FAERS Safety Report 5850616-0 (Version None)
Quarter: 2008Q3

REPORT INFORMATION
  Report Type: 
  Country: None (occurrence: None)
  Receive Date: 20080818
  Receipt Date: 20080806
  Transmission Date: 20090109
  Serious: Yes (Other)
  Sender: FDA-Public Use
  Company Number: 2008BI017711

PATIENT
  Age: 50 Year
  Sex: Male

DRUGS (6)
  1. AVONEX [Suspect]
     Indication: MULTIPLE SCLEROSIS
     Dosage: 30 UG; QW; IM
     Route: 030
     Dates: start: 19990101, end: 20050101
  2. AVONEX [Suspect]
     Indication: MULTIPLE SCLEROSIS
     Dosage: 30 UG; QW; IM
     Route: 030
     Dates: start: 20050101, end: 20080702
  3. DEXEDRINE [Concomitant]
  4. VALIUM [Concomitant]
  5. METHADONE HCL [Concomitant]
  6. MULTI-VITAMIN [Concomitant]

REACTIONS (10)
  - ABSCESS [None]
  - CELLULITIS [None]
  - CONFUSIONAL STATE [None]
  - FATIGUE [None]
  - LOCALISED INFECTION [None]
  - OEDEMA [None]
  - OSTEOMYELITIS [None]
  - PAIN [None]
  - VERTIGO [None]
  - WHITE BLOOD CELL COUNT DECREASED [None]
